FAERS Safety Report 5307183-X (Version None)
Quarter: 2007Q2

REPORT INFORMATION
  Report Type: 
  Country: None (occurrence: None)
  Receive Date: 20070425
  Receipt Date: 20070214
  Transmission Date: 20071010
  Serious: No
  Sender: FDA-Public Use
  Company Number: US-AMGEN-US211269

PATIENT
  Sex: Male
  Weight: 107.6 kg

DRUGS (7)
  1. VECTIBIX [Suspect]
     Indication: COLORECTAL CANCER
     Route: 042
     Dates: start: 20061212
  2. AVASTIN [Concomitant]
     Route: 065
  3. CAMPTOSAR [Concomitant]
     Route: 065
  4. FLUOROURACIL [Concomitant]
     Route: 042
  5. LEUCOVORIN CALCIUM [Concomitant]
     Route: 065
  6. KYTRIL [Concomitant]
     Route: 065
  7. FERROUS SULFATE [Concomitant]
     Route: 065

REACTIONS (1)
  - ABDOMINAL PAIN [None]
